FAERS Safety Report 8758401 (Version 1)
Quarter: 2012Q4

REPORT INFORMATION
  Report Type: Spontaneous
  Country: US (occurrence: None)
  Receive Date: 20120828
  Receipt Date: 20120828
  Transmission Date: 20130627
  Serious: Yes (Hospitalization)
  Sender: FDA-Public Use
  Company Number: None

PATIENT
  Age: 53 Year
  Sex: Male
  Weight: 143.79 kg

DRUGS (2)
  1. METHOTREXATE [Suspect]
     Indication: PSORIASIS
  2. HUMIRA [Concomitant]

REACTIONS (1)
  - Nephrolithiasis [None]
